FAERS Safety Report 5949057-7 (Version None)
Quarter: 2008Q4

REPORT INFORMATION
  Report Type: 
  Country: None (occurrence: None)
  Receive Date: 20081111
  Receipt Date: 20081104
  Transmission Date: 20090506
  Serious: Yes (Hospitalization)
  Sender: FDA-Public Use
  Company Number: US-ELI_LILLY_AND_COMPANY-US200809005561

PATIENT
  Sex: Male
  Weight: 94.785 kg

DRUGS (7)
  1. BYETTA [Suspect]
     Indication: TYPE 2 DIABETES MELLITUS
     Dosage: 5 UG, 2/D
     Route: 058
     Dates: start: 20070508, end: 20071107
  2. BYETTA [Suspect]
     Dosage: 10 UG, 2/D
     Dates: start: 20071107, end: 20080301
  3. METFORMIN HCL [Concomitant]
  4. LISINOPRIL [Concomitant]
  5. ACTOS [Concomitant]
  6. LIPITOR [Concomitant]
  7. GLIPIZIDE [Concomitant]

REACTIONS (5)
  - BLOOD GLUCOSE INCREASED [None]
  - DEHYDRATION [None]
  - ILEUS [None]
  - PANCREATITIS [None]
  - WEIGHT DECREASED [None]
